FAERS Safety Report 8793698 (Version 3)
Quarter: 2012Q4

REPORT INFORMATION
  Report Type: 
  Country: US (occurrence: US)
  Receive Date: 20120918
  Receipt Date: 20121120
  Transmission Date: 20130627
  Serious: Yes (Hospitalization, Disabling, Other)
  Sender: FDA-Public Use
  Company Number: US-009507513-1111USA01975

PATIENT

DRUGS (10)
  1. FOSAMAX [Suspect]
     Indication: OSTEOPENIA
     Dosage: 70 mg, qw
     Route: 048
     Dates: start: 20010518, end: 200903
  2. FOSAMAX [Suspect]
     Indication: OSTEOPOROSIS
  3. BONIVA [Suspect]
     Indication: OSTEOPOROSIS
     Dosage: 150 mg, UNK
     Route: 048
     Dates: start: 20090317, end: 200907
  4. RECLAST [Suspect]
     Route: 041
     Dates: start: 200907
  5. VITAMIN D (UNSPECIFIED) [Concomitant]
     Dosage: UNK
     Route: 048
     Dates: start: 200704, end: 201111
  6. CITRACAL [Concomitant]
     Dosage: UNK
     Dates: start: 2001
  7. MAGNESIUM (UNSPECIFIED) [Concomitant]
     Dosage: UNK
     Route: 048
     Dates: start: 2001
  8. SYNTHROID [Concomitant]
     Indication: HYPOTHYROIDISM
     Dosage: UNK
     Route: 048
     Dates: start: 2002
  9. CALCIUM (UNSPECIFIED) (+) VITAMIN D (UNSPECIFIED) [Concomitant]
     Dosage: UNK
     Dates: start: 200105
  10. VIOXX [Concomitant]
     Dosage: 25 mg, qd
     Route: 048
     Dates: start: 200105

REACTIONS (30)
  - Femur fracture [Not Recovered/Not Resolved]
  - Surgery [Unknown]
  - Open reduction of fracture [Unknown]
  - Pulmonary embolism [Not Recovered/Not Resolved]
  - Cardiac arrest [Not Recovered/Not Resolved]
  - Bladder repair [Unknown]
  - Femur fracture [Not Recovered/Not Resolved]
  - Adverse event [Unknown]
  - Blood cholesterol increased [Unknown]
  - Infection [Unknown]
  - Nasopharyngitis [Unknown]
  - Insomnia [Unknown]
  - Anxiety [Unknown]
  - Pain [Unknown]
  - Chest pain [Unknown]
  - Hysterectomy [Unknown]
  - Dry mouth [Unknown]
  - Incision site pain [Unknown]
  - Incision site oedema [Unknown]
  - Autoimmune thyroiditis [Unknown]
  - Vitamin D deficiency [Unknown]
  - Neck pain [Unknown]
  - Nausea [Unknown]
  - Arthralgia [Unknown]
  - Pain in extremity [Unknown]
  - Fatigue [Unknown]
  - Paraesthesia [Unknown]
  - Dry eye [Unknown]
  - Breast mass [Unknown]
  - Breast calcifications [Unknown]
